FAERS Safety Report 4903010-0 (Version None)
Quarter: 2006Q1

REPORT INFORMATION
  Report Type: 
  Country: None (occurrence: None)
  Receive Date: 20060207
  Receipt Date: 20060127
  Transmission Date: 20060701
  Serious: Yes (Hospitalization)
  Sender: FDA-Public Use
  Company Number: PHHO2006US01681

PATIENT
  Age: 50 Year
  Sex: Female
  Weight: 90.8 kg

DRUGS (11)
  1. TEGASEROD [Suspect]
     Indication: DYSPEPSIA
     Dosage: 6 MG, BID
     Route: 048
     Dates: start: 20041116, end: 20050719
  2. SYNTHROID [Concomitant]
  3. ZESTRIL [Concomitant]
  4. PREMARIN [Concomitant]
  5. CLARITIN [Concomitant]
  6. MILK OF MAGNESIA TAB [Concomitant]
  7. MYLANTA [Concomitant]
  8. FLEXERIL [Concomitant]
  9. PREPARATION H [Concomitant]
  10. ASCORBIC ACID [Concomitant]
  11. NEXIUM [Concomitant]

REACTIONS (9)
  - CHEST PAIN [None]
  - CHILLS [None]
  - CONCOMITANT DISEASE PROGRESSION [None]
  - CONSTIPATION [None]
  - COSTOCHONDRITIS [None]
  - DIARRHOEA [None]
  - NAUSEA [None]
  - PANIC ATTACK [None]
  - VOMITING [None]
